FAERS Safety Report 18831538 (Version 2)
Quarter: 2021Q2

REPORT INFORMATION
  Report Type: Spontaneous
  Country: US (occurrence: US)
  Receive Date: 20210203
  Receipt Date: 20210616
  Transmission Date: 20210717
  Serious: Yes (Other)
  Sender: FDA-Public Use
  Company Number: US-GILEAD-2021-0515580

PATIENT
  Sex: Male
  Weight: 104.31 kg

DRUGS (82)
  1. ATRIPLA [Suspect]
     Active Substance: EFAVIRENZ\EMTRICITABINE\TENOFOVIR DISOPROXIL FUMARATE
     Indication: HIV INFECTION
     Dosage: UNK
     Route: 048
     Dates: start: 2010
  2. DOXYCYCLINE. [Concomitant]
     Active Substance: DOXYCYCLINE
  3. ANALPRAM E [Concomitant]
     Active Substance: HYDROCORTISONE ACETATE\PRAMOXINE HYDROCHLORIDE
  4. ANDROGEL [Concomitant]
     Active Substance: TESTOSTERONE
  5. BUPROPION. [Concomitant]
     Active Substance: BUPROPION
  6. CIPROFLOXACIN. [Concomitant]
     Active Substance: CIPROFLOXACIN
  7. HYDROCORTISONE. [Concomitant]
     Active Substance: HYDROCORTISONE
  8. MAPAP [Concomitant]
     Active Substance: ACETAMINOPHEN
  9. TERBINAFINE. [Concomitant]
     Active Substance: TERBINAFINE
  10. TOPIRAMATE. [Concomitant]
     Active Substance: TOPIRAMATE
  11. DOCUSATE [Concomitant]
     Active Substance: DOCUSATE
  12. FLOMAX RELIEF [Concomitant]
     Active Substance: TAMSULOSIN HYDROCHLORIDE
  13. GUAIFENESIN. [Concomitant]
     Active Substance: GUAIFENESIN
  14. MUCINEX [Concomitant]
     Active Substance: GUAIFENESIN
  15. OXYCONTIN [Concomitant]
     Active Substance: OXYCODONE HYDROCHLORIDE
  16. PROCTOZONE HC [Concomitant]
     Active Substance: HYDROCORTISONE
  17. TOLTERODINE [Concomitant]
     Active Substance: TOLTERODINE
  18. TRAZODONE [Concomitant]
     Active Substance: TRAZODONE HYDROCHLORIDE
  19. VALACYCLOVIR HCL [Concomitant]
     Active Substance: VALACYCLOVIR HYDROCHLORIDE
  20. BIKTARVY [Concomitant]
     Active Substance: BICTEGRAVIR SODIUM\EMTRICITABINE\TENOFOVIR ALAFENAMIDE FUMARATE
  21. ODEFSEY [Concomitant]
     Active Substance: EMTRICITABINE\RILPIVIRINE HYDROCHLORIDE\TENOFOVIR ALAFENAMIDE FUMARATE
  22. ASPIRIN (E.C.) [Concomitant]
     Active Substance: ASPIRIN
  23. AZITHROMYCIN ANHYDROUS. [Concomitant]
     Active Substance: AZITHROMYCIN ANHYDROUS
  24. CALMOSEPTINE [ZINC OXIDE] [Concomitant]
  25. CEFTRIAXONE. [Concomitant]
     Active Substance: CEFTRIAXONE
  26. DOCQLACE [Concomitant]
     Active Substance: DOCUSATE SODIUM
  27. GABAPENTIN. [Concomitant]
     Active Substance: GABAPENTIN
  28. IBUPROFEN. [Concomitant]
     Active Substance: IBUPROFEN
  29. MICROLET [ETHINYLESTRADIOL;GESTODENE] [Concomitant]
  30. MIRTAZAPINE. [Concomitant]
     Active Substance: MIRTAZAPINE
  31. POLYETHYLENE [Concomitant]
     Active Substance: HIGH DENSITY POLYETHYLENE
  32. TAMSULOSIN [Concomitant]
     Active Substance: TAMSULOSIN
  33. WAL DRYL [Concomitant]
  34. COMPLERA [Suspect]
     Active Substance: EMTRICITABINE\RILPIVIRINE HYDROCHLORIDE\TENOFOVIR DISOPROXIL FUMARATE
     Dosage: UNK
     Route: 065
     Dates: start: 2014, end: 2016
  35. ATORVASTATIN [Concomitant]
     Active Substance: ATORVASTATIN
  36. BENZONATATE. [Concomitant]
     Active Substance: BENZONATATE
  37. CHLORHEXIDINE [Concomitant]
     Active Substance: CHLORHEXIDINE
  38. CIALIS [Concomitant]
     Active Substance: TADALAFIL
  39. CYCLOBENZAPRINE. [Concomitant]
     Active Substance: CYCLOBENZAPRINE
  40. HYDROCODONE [Concomitant]
     Active Substance: HYDROCODONE
  41. MELOXICAM. [Concomitant]
     Active Substance: MELOXICAM
  42. PREDNISONE. [Concomitant]
     Active Substance: PREDNISONE
  43. Q?PAP [Concomitant]
     Active Substance: ACETAMINOPHEN
  44. SELENIUM [Concomitant]
     Active Substance: SELENIUM
  45. SILVER SULFADIAZINE. [Concomitant]
     Active Substance: SILVER SULFADIAZINE
  46. DEXAMETHASONE. [Concomitant]
     Active Substance: DEXAMETHASONE
  47. MULTIVITAMINS [VITAMINS NOS] [Concomitant]
     Active Substance: VITAMINS
  48. MUPIROCIN. [Concomitant]
     Active Substance: MUPIROCIN
  49. SMZ (CO) [Concomitant]
  50. COMPLERA [Suspect]
     Active Substance: EMTRICITABINE\RILPIVIRINE HYDROCHLORIDE\TENOFOVIR DISOPROXIL FUMARATE
     Indication: HIV INFECTION
     Dosage: UNK
     Route: 048
     Dates: start: 2010
  51. ALBUTEROL [SALBUTAMOL] [Concomitant]
     Active Substance: ALBUTEROL
  52. DESOXIMETASONE. [Concomitant]
     Active Substance: DESOXIMETASONE
  53. DICYCLOMINE HCL [Concomitant]
     Active Substance: DICYCLOMINE HYDROCHLORIDE
  54. DULOXETINE. [Concomitant]
     Active Substance: DULOXETINE
  55. METFORMIN [Concomitant]
     Active Substance: METFORMIN HYDROCHLORIDE
  56. NITROFURANTOIN. [Concomitant]
     Active Substance: NITROFURANTOIN
  57. OXYCODONE [Concomitant]
     Active Substance: OXYCODONE
  58. PEG 3350 [Concomitant]
     Active Substance: POLYETHYLENE GLYCOL 3350
  59. PODOFILOX. [Concomitant]
     Active Substance: PODOFILOX
  60. SULFAMETHOXAZOLE [Concomitant]
     Active Substance: SULFAMETHOXAZOLE
  61. TOPCORT [DESOXIMETASONE] [Concomitant]
  62. TRIAMCINOLONE [Concomitant]
     Active Substance: TRIAMCINOLONE
  63. VICTOZA [Concomitant]
     Active Substance: LIRAGLUTIDE
  64. ZINC OXIDE. [Concomitant]
     Active Substance: ZINC OXIDE
  65. APAP [Concomitant]
     Active Substance: ACETAMINOPHEN
  66. BACITRACIN. [Concomitant]
     Active Substance: BACITRACIN
  67. CLOTRIMAZOLE. [Concomitant]
     Active Substance: CLOTRIMAZOLE
  68. ENDOCET [Concomitant]
     Active Substance: ACETAMINOPHEN\OXYCODONE HYDROCHLORIDE
  69. LIDOCAINE. [Concomitant]
     Active Substance: LIDOCAINE
  70. METHYLPREDNISOLONE. [Concomitant]
     Active Substance: METHYLPREDNISOLONE
  71. NAPROXEN. [Concomitant]
     Active Substance: NAPROXEN
  72. PRAMCORT [Concomitant]
     Active Substance: HYDROCORTISONE ACETATE\PRAMOXINE HYDROCHLORIDE
  73. ATRIPLA [Suspect]
     Active Substance: EFAVIRENZ\EMTRICITABINE\TENOFOVIR DISOPROXIL FUMARATE
     Dosage: UNK
     Route: 065
     Dates: start: 2006, end: 2014
  74. ANUCORT?HC [Concomitant]
     Active Substance: HYDROCORTISONE ACETATE
  75. BUSPIRONE [Concomitant]
     Active Substance: BUSPIRONE HYDROCHLORIDE
  76. KETOCONAZOLE. [Concomitant]
     Active Substance: KETOCONAZOLE
  77. MORPHINE [Concomitant]
     Active Substance: MORPHINE
  78. PRAMOXINE?HC [Concomitant]
     Active Substance: CHLOROXYLENOL\HYDROCORTISONE\PRAMOXINE HYDROCHLORIDE
  79. REGULOID [Concomitant]
     Active Substance: PSYLLIUM HUSK
  80. VIAGRA [Concomitant]
     Active Substance: SILDENAFIL CITRATE
  81. WELLBUTRIN [Concomitant]
     Active Substance: BUPROPION HYDROCHLORIDE
  82. HYDROXYZINE [Concomitant]
     Active Substance: HYDROXYZINE HYDROCHLORIDE

REACTIONS (8)
  - Anhedonia [Not Recovered/Not Resolved]
  - Anaemia [Not Recovered/Not Resolved]
  - Chronic kidney disease [Not Recovered/Not Resolved]
  - Renal injury [Unknown]
  - Anxiety [Not Recovered/Not Resolved]
  - Pain [Not Recovered/Not Resolved]
  - Emotional distress [Not Recovered/Not Resolved]
  - Hypertension [Not Recovered/Not Resolved]

NARRATIVE: CASE EVENT DATE: 2008
